FAERS Safety Report 17956102 (Version 2)
Quarter: 2020Q3

REPORT INFORMATION
  Report Type: Spontaneous
  Country: US (occurrence: US)
  Receive Date: 20200629
  Receipt Date: 20200731
  Transmission Date: 20201103
  Serious: No
  Sender: FDA-Public Use
  Company Number: US-PFIZER INC-2020249249

PATIENT
  Age: 37 Year
  Sex: Female

DRUGS (1)
  1. IBRANCE [Suspect]
     Active Substance: PALBOCICLIB
     Dosage: UNK
     Dates: start: 20200626

REACTIONS (5)
  - Vulvovaginal dryness [Unknown]
  - Nasal dryness [Unknown]
  - Nausea [Unknown]
  - Mucosal dryness [Unknown]
  - Hepatic enzyme increased [Unknown]
